FAERS Safety Report 5151614-5 (Version None)
Quarter: 2006Q4

REPORT INFORMATION
  Report Type: 
  Country: None (occurrence: None)
  Receive Date: 20061115
  Receipt Date: 20060501
  Transmission Date: 20070319
  Serious: No
  Sender: FDA-Public Use
  Company Number: US-BRISTOL-MYERS SQUIBB COMPANY-13362751

PATIENT
  Age: 45 Year
  Sex: Male
  Weight: 84 kg

DRUGS (5)
  1. SUSTIVA [Suspect]
     Dates: start: 20030101
  2. COMBIVIR [Concomitant]
  3. LIPITOR [Concomitant]
  4. NOVOLIN 70/30 [Concomitant]
  5. MULTI-VITAMIN [Concomitant]

REACTIONS (1)
  - DRUG SCREEN FALSE POSITIVE [None]
